FAERS Safety Report 14684751 (Version 2)
Quarter: 2018Q2

REPORT INFORMATION
  Report Type: Spontaneous
  Country: JP (occurrence: JP)
  Receive Date: 20180327
  Receipt Date: 20180413
  Transmission Date: 20180711
  Serious: Yes (Other)
  Sender: FDA-Public Use
  Company Number: JP-BRISTOL-MYERS SQUIBB COMPANY-BMS-2018-025781

PATIENT
  Age: 58 Year
  Sex: Female

DRUGS (1)
  1. KENACORT-A [Suspect]
     Active Substance: TRIAMCINOLONE
     Indication: EPICONDYLITIS
     Dosage: 40 MG, UNK
     Route: 065

REACTIONS (2)
  - Ligament rupture [Unknown]
  - Tendon rupture [Unknown]
